FAERS Safety Report 13125065 (Version 2)
Quarter: 2017Q1

REPORT INFORMATION
  Report Type: Report from Study
  Country: US (occurrence: US)
  Receive Date: 20170118
  Receipt Date: 20170119
  Transmission Date: 20170428
  Serious: No
  Sender: FDA-Public Use
  Company Number: US-ASTRAZENECA-2017SE03266

PATIENT
  Sex: Female
  Weight: 64 kg

DRUGS (1)
  1. BEVESPI AEROSPHERE [Suspect]
     Active Substance: FORMOTEROL FUMARATE\GLYCOPYRROLATE
     Indication: CHRONIC OBSTRUCTIVE PULMONARY DISEASE
     Dosage: 9/4.8MCG 2 PUFFS ,TWO TIMES A DAY
     Route: 055
     Dates: start: 20161230

REACTIONS (2)
  - Asthenia [Unknown]
  - Dizziness [Unknown]
